FAERS Safety Report 4441680-4 (Version None)
Quarter: 2004Q3

REPORT INFORMATION
  Report Type: 
  Country: None (occurrence: None)
  Receive Date: 20040907
  Receipt Date: 20040831
  Transmission Date: 20050211
  Serious: Yes (Death)
  Sender: FDA-Public Use
  Company Number: BE-JNJFOC-20040803003

PATIENT
  Age: 42 Year
  Sex: Female

DRUGS (1)
  1. PROPULSID [Suspect]
     Route: 049
     Dates: start: 20030312, end: 20040414

REACTIONS (2)
  - CACHEXIA [None]
  - RENAL FAILURE CHRONIC [None]
